FAERS Safety Report 4377454-2 (Version None)
Quarter: 2004Q2

REPORT INFORMATION
  Report Type: 
  Country: None (occurrence: None)
  Receive Date: 20040609
  Receipt Date: 20040525
  Transmission Date: 20050107
  Serious: Yes (Death)
  Sender: FDA-Public Use
  Company Number: JP_040503173

PATIENT
  Age: 93 Year
  Sex: Male

DRUGS (13)
  1. VANCOMYCIN [Suspect]
     Indication: PNEUMONIA STAPHYLOCOCCAL
     Dosage: 500 MG/2 DAY
     Dates: start: 20040515
  2. TOLEDOMIN (MILNACIPRAN HYDROCHLORIDE) [Concomitant]
  3. PREDNISOLONE [Concomitant]
  4. PREDNISOLONE SODIUM SUCCINATE INJ [Concomitant]
  5. UNASYN [Concomitant]
  6. CLARITHROMYCIN [Concomitant]
  7. THEO-DUR [Concomitant]
  8. BUFFERIN [Concomitant]
  9. MUCOSOLVAN (AMBROXOL HYDROCHLORIDE) [Concomitant]
  10. NIZATIDINE [Concomitant]
  11. ASPARA-CA (ASPARTATE CALCIUM) [Concomitant]
  12. ALFAROL (ALFACALCIDOL) [Concomitant]
  13. ONON (PRANLUKAST) [Concomitant]

REACTIONS (14)
  - ALANINE AMINOTRANSFERASE INCREASED [None]
  - ASPARTATE AMINOTRANSFERASE INCREASED [None]
  - BILIARY TRACT INFECTION [None]
  - CONDITION AGGRAVATED [None]
  - DEPRESSED LEVEL OF CONSCIOUSNESS [None]
  - DISSEMINATED INTRAVASCULAR COAGULATION [None]
  - LIVER DISORDER [None]
  - LYMPHOCYTE PERCENTAGE DECREASED [None]
  - MULTI-ORGAN FAILURE [None]
  - NEUTROPHIL PERCENTAGE INCREASED [None]
  - OXYGEN SATURATION DECREASED [None]
  - PLATELET COUNT DECREASED [None]
  - PYREXIA [None]
  - RENAL FAILURE [None]
